FAERS Safety Report 7340397-6 (Version None)
Quarter: 2011Q1

REPORT INFORMATION
  Report Type: 
  Country: None (occurrence: None)
  Receive Date: 20110309
  Receipt Date: 20110302
  Transmission Date: 20110831
  Serious: No
  Sender: FDA-Public Use
  Company Number: US-BIOGENIDEC-2011BI008382

PATIENT
  Sex: Male

DRUGS (2)
  1. TYSABRI [Suspect]
     Indication: MULTIPLE SCLEROSIS
     Route: 042
     Dates: start: 20100125
  2. TYSABRI [Suspect]
     Route: 042
     Dates: start: 20080414, end: 20080609

REACTIONS (2)
  - MUSCLE SPASTICITY [None]
  - MUSCULAR WEAKNESS [None]
